FAERS Safety Report 7922530-8 (Version None)
Quarter: 2011Q4

REPORT INFORMATION
  Report Type: 
  Country: None (occurrence: None)
  Receive Date: 20111117
  Receipt Date: 20110121
  Transmission Date: 20120403
  Serious: No
  Sender: FDA-Public Use
  Company Number: US-AMGEN-USASP2011004027

PATIENT
  Age: 50 Year
  Sex: Female

DRUGS (2)
  1. ENBREL [Suspect]
     Indication: RHEUMATOID ARTHRITIS
     Dosage: 50 MG, QWK
     Dates: start: 20070101, end: 20110112
  2. METHOTREXATE [Concomitant]
     Dosage: 1 MG, QWK
     Dates: start: 20060101

REACTIONS (13)
  - EXOSTOSIS [None]
  - TRIGGER FINGER [None]
  - NASAL CONGESTION [None]
  - CYST [None]
  - POSTOPERATIVE WOUND INFECTION [None]
  - PRODUCTIVE COUGH [None]
  - ARTHRITIS [None]
  - NODULE [None]
  - FOOT DEFORMITY [None]
  - PYREXIA [None]
  - PAIN IN EXTREMITY [None]
  - JOINT RANGE OF MOTION DECREASED [None]
  - OEDEMA PERIPHERAL [None]
